FAERS Safety Report 19645716 (Version 1)
Quarter: 2021Q3

REPORT INFORMATION
  Report Type: Spontaneous
  Country: US (occurrence: US)
  Receive Date: 20210801
  Receipt Date: 20210801
  Transmission Date: 20211014
  Serious: Yes (Other)
  Sender: FDA-Public Use
  Company Number: None

PATIENT
  Sex: Female
  Weight: 92.25 kg

DRUGS (7)
  1. ENTYVIO [Concomitant]
     Active Substance: VEDOLIZUMAB
  2. FLUOXETINE 40MG [Concomitant]
     Active Substance: FLUOXETINE HYDROCHLORIDE
  3. METHOTREXATE INJECTION 25MG/1ML [Suspect]
     Active Substance: METHOTREXATE
     Indication: ARTHRITIS
     Dosage: ?          OTHER STRENGTH:MG/ML;QUANTITY:1 ML;OTHER FREQUENCY:ONCE A WEEK;OTHER ROUTE:SUBCUTANEOUS INJECTION?
     Dates: start: 20210722
  4. TYLENOL [Concomitant]
     Active Substance: ACETAMINOPHEN
  5. BREO ELLIPTA [Concomitant]
     Active Substance: FLUTICASONE FUROATE\VILANTEROL TRIFENATATE
  6. ALBUTEROL INHALER [Concomitant]
     Active Substance: ALBUTEROL
  7. IBUPROFEN. [Concomitant]
     Active Substance: IBUPROFEN

REACTIONS (4)
  - Pain [None]
  - Skin discolouration [None]
  - Skin warm [None]
  - Rash [None]
